FAERS Safety Report 5075964-6 (Version None)
Quarter: 2006Q3

REPORT INFORMATION
  Report Type: 
  Country: None (occurrence: None)
  Receive Date: 20060808
  Receipt Date: 20060808
  Transmission Date: 20061208
  Serious: Yes (Life-Threatening, Hospitalization)
  Sender: FDA-Public Use
  Company Number: None

PATIENT
  Age: 68 Year
  Sex: Female
  Weight: 78.8 kg

DRUGS (2)
  1. CLONIDINE [Suspect]
     Indication: HYPERTENSION
     Dosage: 0.2MG BID PO
     Route: 048
  2. LISINOPRIL [Suspect]
     Indication: HYPERTENSION
     Dosage: 40 MG QD PO
     Route: 048

REACTIONS (9)
  - ASTHENIA [None]
  - ATRIAL FLUTTER [None]
  - BRADYCARDIA [None]
  - CONDITION AGGRAVATED [None]
  - DIZZINESS [None]
  - DRUG WITHDRAWAL SYNDROME [None]
  - HYPERTENSION [None]
  - HYPOTENSION [None]
  - TACHYCARDIA [None]
